FAERS Safety Report 20715202 (Version 1)
Quarter: 2022Q2

REPORT INFORMATION
  Report Type: Spontaneous
  Country: US (occurrence: None)
  Receive Date: 20220415
  Receipt Date: 20220415
  Transmission Date: 20220721
  Serious: No
  Sender: FDA-Public Use
  Company Number: None

PATIENT
  Age: 66 Year
  Sex: Female
  Weight: 73.66 kg

DRUGS (25)
  1. CAPECITABINE [Suspect]
     Active Substance: CAPECITABINE
     Indication: Colon cancer
     Dosage: FREQUENCY : TWICE A DAY;?
     Route: 048
  2. ALBUTEROL [Concomitant]
     Active Substance: ALBUTEROL
  3. ALENDRONATE [Concomitant]
     Active Substance: ALENDRONATE SODIUM
  4. ATORVASTATIN [Concomitant]
     Active Substance: ATORVASTATIN
  5. COLACE [Concomitant]
     Active Substance: DOCUSATE SODIUM
  6. DILTIAZEM [Concomitant]
     Active Substance: DILTIAZEM
  7. DULCOLAX NOS [Concomitant]
     Active Substance: BISACODYL OR DOCUSATE SODIUM
  8. FERROUSE SULFATE [Concomitant]
  9. GABAPENTIN [Concomitant]
     Active Substance: GABAPENTIN
  10. LIDOCAINE\PRILOCAINE [Concomitant]
     Active Substance: LIDOCAINE\PRILOCAINE
  11. LYSINE [Concomitant]
     Active Substance: LYSINE
  12. MAGOX [Concomitant]
  13. MIRALAX [Concomitant]
     Active Substance: POLYETHYLENE GLYCOL 3350
  14. MONTELUKAST [Concomitant]
     Active Substance: MONTELUKAST SODIUM
  15. MOTRIN [Concomitant]
     Active Substance: IBUPROFEN
  16. MUCINEX [Concomitant]
     Active Substance: GUAIFENESIN
  17. PAXIL [Concomitant]
     Active Substance: PAROXETINE HYDROCHLORIDE
  18. PROCHLORPERAZINE [Concomitant]
     Active Substance: PROCHLORPERAZINE
  19. SPIRIVA [Concomitant]
     Active Substance: TIOTROPIUM BROMIDE MONOHYDRATE
  20. SYMBICORT [Concomitant]
     Active Substance: BUDESONIDE\FORMOTEROL FUMARATE DIHYDRATE
  21. TYLENOL [Concomitant]
     Active Substance: ACETAMINOPHEN
  22. VALSARTAN [Concomitant]
     Active Substance: VALSARTAN
  23. VITAMIN C [Concomitant]
     Active Substance: ASCORBIC ACID
  24. ZINC [Concomitant]
     Active Substance: ZINC
  25. ZOFRAN [Concomitant]
     Active Substance: ONDANSETRON HYDROCHLORIDE

REACTIONS (3)
  - Skin disorder [None]
  - Perforated ulcer [None]
  - Full blood count decreased [None]
